FAERS Safety Report 9665307 (Version 1)
Quarter: 2013Q4

REPORT INFORMATION
  Report Type: Spontaneous
  Country: AU (occurrence: AU)
  Receive Date: 20131101
  Receipt Date: 20131101
  Transmission Date: 20140711
  Serious: Yes (Congenital Anomaly)
  Sender: FDA-Public Use
  Company Number: AU-ABBVIE-13P-008-1161553-00

PATIENT
  Age: 9 Year
  Sex: 0

DRUGS (1)
  1. VALPROATE SODIUM [Suspect]
     Indication: MATERNAL EXPOSURE TIMING UNSPECIFIED
     Route: 064

REACTIONS (10)
  - Developmental delay [Unknown]
  - Hypotonia [Unknown]
  - Feeding disorder neonatal [Unknown]
  - Deafness bilateral [Unknown]
  - Abnormal behaviour [Unknown]
  - Congenital mitochondrial cytopathy [Unknown]
  - Cytogenetic abnormality [Unknown]
  - DiGeorge^s syndrome [Unknown]
  - Microcephaly [Unknown]
  - Foetal exposure during pregnancy [Unknown]
